FAERS Safety Report 14666646 (Version 1)
Quarter: 2018Q1

REPORT INFORMATION
  Report Type: Spontaneous
  Country: FI (occurrence: FI)
  Receive Date: 20180322
  Receipt Date: 20180322
  Transmission Date: 20180509
  Serious: Yes (Other)
  Sender: FDA-Public Use
  Company Number: FI-CIPLA LTD.-2018FI11815

PATIENT

DRUGS (5)
  1. AMLODIPINE [Suspect]
     Active Substance: AMLODIPINE BESYLATE
     Indication: TUBULOINTERSTITIAL NEPHRITIS
     Dosage: UNK, PER DAY
     Route: 065
     Dates: start: 20170101
  2. HUMIRA [Suspect]
     Active Substance: ADALIMUMAB
     Indication: CROHN^S DISEASE
     Dosage: 40 MG, UNK
     Route: 058
     Dates: start: 20170327, end: 20170601
  3. PREDNISOLONE. [Suspect]
     Active Substance: PREDNISOLONE
     Indication: TUBULOINTERSTITIAL NEPHRITIS
     Dosage: UNK, TABLET
     Route: 048
     Dates: start: 20170701
  4. CORTIMENT [Concomitant]
     Indication: CROHN^S DISEASE
     Dosage: UNK
     Route: 065
     Dates: end: 20170701
  5. PENTASA [Concomitant]
     Active Substance: MESALAMINE
     Indication: CROHN^S DISEASE
     Dosage: 3 G, UNK
     Route: 048
     Dates: end: 20170601

REACTIONS (9)
  - Red blood cell sedimentation rate abnormal [Recovered/Resolved]
  - Drug specific antibody [Unknown]
  - Drug level changed [Unknown]
  - Blood creatinine increased [Recovering/Resolving]
  - Haemoglobin decreased [Recovering/Resolving]
  - Tubulointerstitial nephritis [Recovering/Resolving]
  - Renal tubular injury [Recovering/Resolving]
  - Renal failure [Recovering/Resolving]
  - Blood pressure increased [Unknown]

NARRATIVE: CASE EVENT DATE: 20170101
